FAERS Safety Report 7920035-1 (Version None)
Quarter: 2011Q4

REPORT INFORMATION
  Report Type: 
  Country: None (occurrence: None)
  Receive Date: 20111115
  Receipt Date: 20111102
  Transmission Date: 20120403
  Serious: Yes (Death, Hospitalization)
  Sender: FDA-Public Use
  Company Number: 2011270509

PATIENT
  Age: 70 Year
  Sex: Female

DRUGS (2)
  1. FRAGMIN [Suspect]
     Indication: IDIOPATHIC THROMBOCYTOPENIC PURPURA
     Dosage: 15000 IU,SUBCUTANEOUS; 12500 IU
     Route: 058
     Dates: start: 20110901, end: 20111001
  2. FRAGMIN [Suspect]
     Indication: IDIOPATHIC THROMBOCYTOPENIC PURPURA
     Dosage: 15000 IU,SUBCUTANEOUS; 12500 IU
     Route: 058
     Dates: start: 20111001, end: 20111001

REACTIONS (2)
  - CONDITION AGGRAVATED [None]
  - HEAD AND NECK CANCER [None]
